FAERS Safety Report 8509164-1 (Version None)
Quarter: 2012Q3

REPORT INFORMATION
  Report Type: 
  Country: None (occurrence: None)
  Receive Date: 20120713
  Receipt Date: 20120705
  Transmission Date: 20120928
  Serious: Yes (Hospitalization)
  Sender: FDA-Public Use
  Company Number: US-GLAXOSMITHKLINE-B0814402A

PATIENT
  Age: 5 Year
  Sex: Male

DRUGS (6)
  1. LAMOTRIGINE [Suspect]
     Indication: ABNORMAL BEHAVIOUR
     Route: 065
  2. DEXTROAMPHETAMINE [Suspect]
     Indication: ABNORMAL BEHAVIOUR
     Route: 065
  3. ARIPIPRAZOLE [Suspect]
     Route: 065
  4. METHYLPHENIDATE [Suspect]
     Indication: ABNORMAL BEHAVIOUR
     Route: 065
  5. VALPROIC ACID [Suspect]
     Route: 065
  6. LEVETIRACETAM [Suspect]
     Indication: GUILLAIN-BARRE SYNDROME
     Route: 065

REACTIONS (13)
  - AGGRESSION [None]
  - AFFECT LABILITY [None]
  - RASH [None]
  - MUSCULAR WEAKNESS [None]
  - TOXICITY TO VARIOUS AGENTS [None]
  - COORDINATION ABNORMAL [None]
  - ABNORMAL BEHAVIOUR [None]
  - CHOREA [None]
  - GAIT DISTURBANCE [None]
  - DYSKINESIA [None]
  - ATAXIA [None]
  - THROMBOCYTOPENIA [None]
  - KLINEFELTER'S SYNDROME [None]
